FAERS Safety Report 7659553-2 (Version None)
Quarter: 2011Q3

REPORT INFORMATION
  Report Type: 
  Country: None (occurrence: None)
  Receive Date: 20110805
  Receipt Date: 20110729
  Transmission Date: 20111222
  Serious: Yes (Hospitalization)
  Sender: FDA-Public Use
  Company Number: ES-CEPHALON-2011004093

PATIENT
  Sex: Female
  Weight: 69 kg

DRUGS (8)
  1. SEPTRA [Concomitant]
  2. LANTUS [Concomitant]
  3. TORSEMIDE [Concomitant]
  4. BISOPROLOL FUMARATE [Concomitant]
  5. BENDAMUSTINE HCL [Suspect]
     Indication: B-CELL LYMPHOMA
     Route: 042
     Dates: start: 20110711, end: 20110712
  6. ASPIRIN [Concomitant]
  7. LEVOTHYROXINE SODIUM [Concomitant]
  8. EZETIMIBE [Concomitant]

REACTIONS (2)
  - BRONCHITIS [None]
  - NEUTROPENIA [None]
